FAERS Safety Report 20208960 (Version 1)
Quarter: 2021Q4

REPORT INFORMATION
  Report Type: Spontaneous
  Country: US (occurrence: US)
  Receive Date: 20211220
  Receipt Date: 20211220
  Transmission Date: 20220303
  Serious: No
  Sender: FDA-Public Use
  Company Number: US-SUNOVION-2021SUN004600

PATIENT
  Age: 35 Year
  Sex: Male

DRUGS (3)
  1. LATUDA [Suspect]
     Active Substance: LURASIDONE HYDROCHLORIDE
     Dosage: UNK
     Route: 048
     Dates: start: 2012
  2. LATUDA [Suspect]
     Active Substance: LURASIDONE HYDROCHLORIDE
     Dosage: 80 MG, HS
     Route: 048
  3. BENZTROPINE [Concomitant]
     Active Substance: BENZTROPINE

REACTIONS (4)
  - Abnormal behaviour [Unknown]
  - Therapeutic product effect decreased [Unknown]
  - Middle insomnia [Unknown]
  - Insomnia [Unknown]
